FAERS Safety Report 8199223-8 (Version None)
Quarter: 2012Q1

REPORT INFORMATION
  Report Type: 
  Country: None (occurrence: None)
  Receive Date: 20120306
  Receipt Date: 20120224
  Transmission Date: 20120608
  Serious: Yes (Hospitalization)
  Sender: FDA-Public Use
  Company Number: 2012AP000533

PATIENT
  Age: 50 Year
  Sex: Female

DRUGS (4)
  1. VICODIN ES [Suspect]
     Indication: PRODUCT USED FOR UNKNOWN INDICATION
  2. CLONAZEPAM [Suspect]
     Indication: PRODUCT USED FOR UNKNOWN INDICATION
  3. ALBUTEROL SULFATE AND IPRATROPIUM BROMIDE [Suspect]
     Indication: PRODUCT USED FOR UNKNOWN INDICATION
  4. METOPROLOL SUCCINATE [Suspect]
     Indication: PRODUCT USED FOR UNKNOWN INDICATION

REACTIONS (7)
  - DYSPNOEA [None]
  - METABOLIC ACIDOSIS [None]
  - ASTHENIA [None]
  - LABORATORY TEST ABNORMAL [None]
  - HAEMODIALYSIS [None]
  - ANION GAP INCREASED [None]
  - RENAL FAILURE ACUTE [None]
